FAERS Safety Report 10338707 (Version 3)
Quarter: 2014Q3

REPORT INFORMATION
  Report Type: Not Available
  Country: PT (occurrence: PT)
  Receive Date: 20140724
  Receipt Date: 20140905
  Transmission Date: 20150326
  Serious: Yes (Disabling, Other)
  Sender: FDA-Public Use
  Company Number: PT-BEH-2014043922

PATIENT
  Sex: Male

DRUGS (2)
  1. PRIVIGEN [Suspect]
     Active Substance: HUMAN IMMUNOGLOBULIN G
     Indication: POLYNEUROPATHY
     Dosage: 30 G IN TOTAL OF BOTH BATCH NUMBERS; SOLUTION FOR PERFUSION 100 MG/ML
     Route: 042
     Dates: start: 20140228
  2. PRIVIGEN [Suspect]
     Active Substance: HUMAN IMMUNOGLOBULIN G
     Dosage: 30 G IN TOTAL OF BOTH BATCH NUMBERS; SOLUTION FOR PERFUSION 100 MG/ML
     Route: 042

REACTIONS (4)
  - Polyneuropathy [Not Recovered/Not Resolved]
  - Drug ineffective [Not Recovered/Not Resolved]
  - Product quality issue [Unknown]
  - Condition aggravated [Not Recovered/Not Resolved]
